FAERS Safety Report 4953648-X (Version None)
Quarter: 2006Q1

REPORT INFORMATION
  Report Type: 
  Country: None (occurrence: None)
  Receive Date: 20060321
  Receipt Date: 20060308
  Transmission Date: 20060701
  Serious: Yes (Death, Other)
  Sender: FDA-Public Use
  Company Number: HQWYE762325JUN03

PATIENT
  Age: 64 Year
  Sex: Male
  Weight: 74.5 kg

DRUGS (14)
  1. MYLOTARG [Suspect]
     Indication: ACUTE MYELOID LEUKAEMIA
     Dosage: 17 MG 1X PER 1 DAY, INTRAVENOUS
     Route: 042
     Dates: start: 20030620, end: 20030620
  2. ALLOPURINOL [Concomitant]
  3. (VITAMINS NOS) [Concomitant]
  4. DIPHENHYDRAMINE HCL [Concomitant]
  5. PERCOCET [Concomitant]
  6. RESTORIL [Concomitant]
  7. ATIVAN [Concomitant]
  8. ATIVAN [Concomitant]
  9. ATIVAN [Concomitant]
  10. PROCHLORPERAZINE MALEATE [Concomitant]
  11. ACETAMINOPHEN [Concomitant]
  12. HYDROCORTISONE [Concomitant]
  13. AMICAR [Concomitant]
  14. PHYTONADIONE [Concomitant]

REACTIONS (13)
  - ACUTE MYELOID LEUKAEMIA [None]
  - CHILLS [None]
  - DYSPNOEA [None]
  - HYPOTENSION [None]
  - INFUSION RELATED REACTION [None]
  - MALIGNANT NEOPLASM PROGRESSION [None]
  - OXYGEN SATURATION DECREASED [None]
  - PYREXIA [None]
  - TACHYCARDIA [None]
  - TACHYPNOEA [None]
  - THERAPY NON-RESPONDER [None]
  - WEIGHT INCREASED [None]
  - WHITE BLOOD CELL COUNT DECREASED [None]
